FAERS Safety Report 14323413 (Version 1)
Quarter: 2017Q4

REPORT INFORMATION
  Report Type: Spontaneous
  Country: US (occurrence: US)
  Receive Date: 20171226
  Receipt Date: 20171226
  Transmission Date: 20180321
  Serious: Yes (Hospitalization, Other)
  Sender: FDA-Public Use
  Company Number: US-TORRENT-00005629

PATIENT
  Age: 72 Year
  Sex: Female
  Weight: 68 kg

DRUGS (4)
  1. SYNTHROID [Concomitant]
     Active Substance: LEVOTHYROXINE SODIUM
     Indication: UTERINE LEIOMYOMA
  2. ASPIRIN. [Concomitant]
     Active Substance: ASPIRIN
     Indication: PROPHYLAXIS
  3. CRESTOR [Concomitant]
     Active Substance: ROSUVASTATIN CALCIUM
     Indication: BLOOD CHOLESTEROL INCREASED
  4. ROSUVASTATIN CALCIUM TABLET [Suspect]
     Active Substance: ROSUVASTATIN CALCIUM
     Indication: BLOOD CHOLESTEROL INCREASED
     Dosage: ON OR BEFORE 10-NOV-2017
     Route: 048
     Dates: start: 201711, end: 20171126

REACTIONS (4)
  - Product substitution issue [None]
  - Fatigue [Recovered/Resolved]
  - Renal tubular necrosis [Unknown]
  - Product substitution issue [Unknown]

NARRATIVE: CASE EVENT DATE: 20171124
